FAERS Safety Report 19059905 (Version 2)
Quarter: 2021Q1

REPORT INFORMATION
  Report Type: Spontaneous
  Country: PT (occurrence: PT)
  Receive Date: 20210326
  Receipt Date: 20210331
  Transmission Date: 20210420
  Serious: Yes (Death, Hospitalization, Other)
  Sender: FDA-Public Use
  Company Number: PT-ABBVIE-21K-130-3828427-00

PATIENT
  Age: 49 Year
  Sex: Female

DRUGS (1)
  1. MAVIRET [Suspect]
     Active Substance: GLECAPREVIR\PIBRENTASVIR
     Indication: CHRONIC HEPATITIS C
     Dosage: STRENGTH 100 MG/40 MG
     Route: 048
     Dates: start: 20210208, end: 20210227

REACTIONS (4)
  - Death [Fatal]
  - Urine cannabinoids increased [Unknown]
  - Aneurysm [Unknown]
  - Headache [Unknown]

NARRATIVE: CASE EVENT DATE: 2021
